FAERS Safety Report 8899149 (Version 1)
Quarter: 2012Q4

REPORT INFORMATION
  Report Type: 
  Country: US (occurrence: US)
  Receive Date: 20121109
  Receipt Date: 20121109
  Transmission Date: 20130627
  Serious: Yes (Other)
  Sender: FDA-Public Use
  Company Number: CHPA2012US022850

PATIENT
  Age: 53 Year
  Sex: Male
  Weight: 219.96 kg

DRUGS (1)
  1. NEOCITRAN NIGHTTIME TOTAL SYMPTOM RELIEF [Suspect]
     Indication: NASOPHARYNGITIS
     Dosage: Unk, Unk
     Route: 048
     Dates: end: 2011

REACTIONS (3)
  - Lymphoedema [Not Recovered/Not Resolved]
  - Oedema peripheral [Unknown]
  - Expired drug administered [Unknown]
